FAERS Safety Report 4494198-7 (Version None)
Quarter: 2004Q4

REPORT INFORMATION
  Report Type: 
  Country: None (occurrence: None)
  Receive Date: 20041105
  Receipt Date: 20041028
  Transmission Date: 20050328
  Serious: Yes (Life-Threatening)
  Sender: FDA-Public Use
  Company Number: FR-ROCHE-384615

PATIENT
  Age: 76 Year
  Sex: Female

DRUGS (10)
  1. RIVOTRIL [Suspect]
     Route: 048
  2. RIVOTRIL [Suspect]
     Route: 048
  3. TENORMIN [Suspect]
     Route: 048
  4. ANAFRANIL [Suspect]
     Route: 048
  5. LOXEN [Suspect]
     Route: 048
  6. HALDOL [Suspect]
     Route: 048
  7. TEMESTA [Suspect]
     Route: 048
  8. KARDEGIC [Concomitant]
     Indication: DRUG USE FOR UNKNOWN INDICATION
     Route: 065
  9. INIPOMP [Concomitant]
  10. TRIVASTAL [Concomitant]

REACTIONS (1)
  - HEPATITIS CHOLESTATIC [None]
